FAERS Safety Report 5120839-7 (Version None)
Quarter: 2006Q4

REPORT INFORMATION
  Report Type: 
  Country: None (occurrence: None)
  Receive Date: 20061003
  Receipt Date: 20061003
  Transmission Date: 20070319
  Serious: Yes (Hospitalization, Other)
  Sender: FDA-Public Use
  Company Number: None

PATIENT
  Sex: Male
  Weight: 20.8655 kg

DRUGS (5)
  1. MOTRIN [Suspect]
     Indication: PAIN
     Dosage: VARIED BY WEIGHT PRN BY MOUTH
     Route: 048
  2. MOTRIN [Suspect]
     Indication: PYREXIA
     Dosage: VARIED BY WEIGHT PRN BY MOUTH
     Route: 048
  3. TYLENOL MELTAWAYS [Suspect]
     Indication: PAIN
     Dosage: 4 AGE PRN BY MOUTH
     Route: 048
  4. TYLENOL MELTAWAYS [Suspect]
     Indication: PYREXIA
     Dosage: 4 AGE PRN BY MOUTH
     Route: 048
  5. MOTRIN [Suspect]

REACTIONS (3)
  - EAR INFECTION [None]
  - LABORATORY TEST ABNORMAL [None]
  - PYREXIA [None]
